FAERS Safety Report 8911277 (Version 1)
Quarter: 2012Q4

REPORT INFORMATION
  Report Type: 
  Country: US (occurrence: US)
  Receive Date: 20121116
  Receipt Date: 20121116
  Transmission Date: 20130627
  Serious: No
  Sender: FDA-Public Use
  Company Number: US-GLAXOSMITHKLINE-A0995120A

PATIENT
  Age: 55 Year
  Sex: Female

DRUGS (4)
  1. VOTRIENT [Suspect]
     Indication: RENAL CELL CARCINOMA
     Dosage: 800MG Per day
     Route: 048
     Dates: start: 201112
  2. LISINOPRIL [Concomitant]
  3. ONE A DAY VITAMINS [Concomitant]
  4. FISH OIL [Concomitant]

REACTIONS (9)
  - Diarrhoea [Not Recovered/Not Resolved]
  - Skin hypopigmentation [Unknown]
  - Hair colour changes [Unknown]
  - Oropharyngeal pain [Unknown]
  - Dysphonia [Unknown]
  - Decreased appetite [Unknown]
  - Dysgeusia [Unknown]
  - Weight decreased [Unknown]
  - Weight increased [Unknown]
